FAERS Safety Report 18028344 (Version 1)
Quarter: 2020Q3

REPORT INFORMATION
  Report Type: Spontaneous
  Country: GB (occurrence: GB)
  Receive Date: 20200716
  Receipt Date: 20200716
  Transmission Date: 20201103
  Serious: Yes (Other)
  Sender: FDA-Public Use
  Company Number: GB-TEVA-2020-GB-1800998

PATIENT
  Sex: Female

DRUGS (1)
  1. GABAPENTIN. [Suspect]
     Active Substance: GABAPENTIN
     Dosage: 2400 MILLIGRAM DAILY; TWO 400MG CAPSULES SEVERAL TIMES A DAY
     Route: 065

REACTIONS (2)
  - Paralysis [Unknown]
  - Feeling abnormal [Unknown]
